FAERS Safety Report 6907692-3 (Version None)
Quarter: 2010Q3

REPORT INFORMATION
  Report Type: 
  Country: None (occurrence: None)
  Receive Date: 20100805
  Receipt Date: 20100727
  Transmission Date: 20110219
  Serious: Yes (Other)
  Sender: FDA-Public Use
  Company Number: CA-ASTRAZENECA-2010SE35122

PATIENT
  Age: 70 Year
  Sex: Female

DRUGS (3)
  1. CRESTOR [Suspect]
     Route: 048
     Dates: start: 20090101
  2. RAMIPRIL [Concomitant]
     Route: 048
  3. ASA BABY [Concomitant]
     Route: 048

REACTIONS (2)
  - EYE HAEMORRHAGE [None]
  - INCREASED TENDENCY TO BRUISE [None]
